FAERS Safety Report 8330912-8 (Version None)
Quarter: 2012Q2

REPORT INFORMATION
  Report Type: 
  Country: None (occurrence: None)
  Receive Date: 20120502
  Receipt Date: 20120423
  Transmission Date: 20120825
  Serious: No
  Sender: FDA-Public Use
  Company Number: US-PFIZER INC-2012082741

PATIENT
  Sex: Female

DRUGS (1)
  1. EPIPEN [Suspect]

REACTIONS (4)
  - INJECTION SITE PAIN [None]
  - ACCIDENTAL EXPOSURE [None]
  - CONTUSION [None]
  - FEELING ABNORMAL [None]
